FAERS Safety Report 17027901 (Version 1)
Quarter: 2019Q4

REPORT INFORMATION
  Report Type: Spontaneous
  Country: HU (occurrence: HU)
  Receive Date: 20191113
  Receipt Date: 20191113
  Transmission Date: 20200122
  Serious: Yes (Other)
  Sender: FDA-Public Use
  Company Number: HU-SEPTODONT-201905579

PATIENT
  Age: 26 Year
  Sex: Female

DRUGS (4)
  1. ARTICAINE HYDROCHLORIDE (40 MG/ML PLUS ADRENALINE 0.01 MG/ML [Suspect]
     Active Substance: ARTICAINE HYDROCHLORIDE\EPINEPHRINE BITARTRATE
     Indication: DENTAL LOCAL ANAESTHESIA
     Dosage: GREATER PALATINE NERVE BLOCK. ??
     Route: 004
  2. ARTICAINE HYDROCHLORIDE (40 MG/ML PLUS ADRENALINE 0.01 MG/ML [Suspect]
     Active Substance: ARTICAINE HYDROCHLORIDE\EPINEPHRINE BITARTRATE
     Indication: DENTAL LOCAL ANAESTHESIA
     Dosage: ABOVE THE 3RD MOLAR.??
     Route: 004
  3. ARTICAINE HYDROCHLORIDE (40 MG/ML PLUS ADRENALINE 0.01 MG/ML [Suspect]
     Active Substance: ARTICAINE HYDROCHLORIDE\EPINEPHRINE BITARTRATE
     Indication: DENTAL LOCAL ANAESTHESIA
     Dosage: INFERIOR DENTAL NERVE BLOCK (1.5 ML) COMBINED WITH BUCCAL NERVE INFILTRATION (0.2 ML).??
     Route: 004
  4. ARTICAINE HYDROCHLORIDE (40 MG/ML PLUS ADRENALINE 0.01 MG/ML [Suspect]
     Active Substance: ARTICAINE HYDROCHLORIDE\EPINEPHRINE BITARTRATE
     Indication: DENTAL LOCAL ANAESTHESIA
     Dosage: INFERIOR DENTAL NERVE BLOCK (1.5 ML) COMBINED WITH BUCCAL NERVE INFILTRATION (0.2 ML).??
     Route: 004

REACTIONS (2)
  - Diplopia [Recovered/Resolved]
  - Ophthalmoplegia [Recovered/Resolved]
